FAERS Safety Report 14591996 (Version 1)
Quarter: 2018Q1

REPORT INFORMATION
  Report Type: Spontaneous
  Country: IT (occurrence: IT)
  Receive Date: 20180302
  Receipt Date: 20180302
  Transmission Date: 20180509
  Serious: Yes (Hospitalization)
  Sender: FDA-Public Use
  Company Number: IT-UCBSA-2018007607

PATIENT
  Age: 51 Year
  Sex: Female

DRUGS (3)
  1. KEPPRA [Suspect]
     Active Substance: LEVETIRACETAM
     Indication: PARTIAL SEIZURES
     Dosage: 2G DAILY
     Route: 048
     Dates: start: 20170101, end: 20170602
  2. GARDENALE [Suspect]
     Active Substance: PHENOBARBITAL
     Indication: PARTIAL SEIZURES
     Dosage: 150 MG, DAILY
     Route: 048
     Dates: start: 20170601, end: 20170602
  3. DEPAKIN [Suspect]
     Active Substance: VALPROATE SODIUM
     Indication: PARTIAL SEIZURES
     Dosage: 1000 MG, DAILY
     Route: 048
     Dates: start: 20170101, end: 20170602

REACTIONS (1)
  - Partial seizures [Unknown]

NARRATIVE: CASE EVENT DATE: 20170602
